FAERS Safety Report 5045851-8 (Version None)
Quarter: 2006Q2

REPORT INFORMATION
  Report Type: 
  Country: None (occurrence: None)
  Receive Date: 20060629
  Receipt Date: 20060619
  Transmission Date: 20061013
  Serious: Yes (Hospitalization)
  Sender: FDA-Public Use
  Company Number: 2006067235

PATIENT
  Age: 75 Year
  Sex: Male

DRUGS (10)
  1. SULPERAZON (SULBACTAM, CEFOPERAZONE) [Suspect]
     Indication: BACTERIAL INFECTION
     Dosage: 1 GRAM (1 GRAM, QD), INTRAVENOUS
     Route: 042
     Dates: start: 20060522, end: 20060522
  2. SAXIZON (HYDROCORTISONE SODIUM SUCCINATE) [Concomitant]
  3. AMINOPHYLLIN [Concomitant]
  4. ISOTONIC SOLUTIONS [Concomitant]
  5. OLMETEC (OLMESARTAN) [Concomitant]
  6. AMLODIPINE [Concomitant]
  7. THEOPHYLLINE [Concomitant]
  8. ONON (PRANLUKAST) [Concomitant]
  9. HOKUNALIN (TULOBUTEROL HYDROCHLORIDE) [Concomitant]
  10. PROCATEROL HCL [Concomitant]

REACTIONS (11)
  - ANAPHYLACTIC SHOCK [None]
  - ASTHMA [None]
  - BACTERIAL INFECTION [None]
  - BRONCHITIS [None]
  - CHEST DISCOMFORT [None]
  - CONDITION AGGRAVATED [None]
  - HEART RATE DECREASED [None]
  - NASOPHARYNGITIS [None]
  - RALES [None]
  - RESPIRATORY ARREST [None]
  - RESPIRATORY FAILURE [None]
